FAERS Safety Report 8418628-0 (Version None)
Quarter: 2012Q2

REPORT INFORMATION
  Report Type: 
  Country: None (occurrence: None)
  Receive Date: 20120607
  Receipt Date: 20120604
  Transmission Date: 20120825
  Serious: Yes (Other)
  Sender: FDA-Public Use
  Company Number: US-BAYER-2012-055835

PATIENT
  Sex: Female

DRUGS (2)
  1. MIRENA [Suspect]
     Indication: CONTRACEPTION
     Dosage: 20 MCG/24HR, CONT
     Route: 015
     Dates: start: 20011212, end: 20120515
  2. MIRENA [Suspect]
     Indication: MENORRHAGIA

REACTIONS (3)
  - UTERINE LEIOMYOMA [None]
  - PAIN [None]
  - VAGINAL HAEMORRHAGE [None]
